FAERS Safety Report 7527644-2 (Version None)
Quarter: 2011Q2

REPORT INFORMATION
  Report Type: 
  Country: None (occurrence: None)
  Receive Date: 20110512
  Receipt Date: 20110316
  Transmission Date: 20111010
  Serious: No
  Sender: FDA-Public Use
  Company Number: 1000019294

PATIENT
  Age: 63 Year
  Sex: Female

DRUGS (11)
  1. TRAMADOL (TRAMADOL) (50 MILLIGRAM, TABLETS) (TRAMADOL) [Concomitant]
  2. CLONAZEPAM (CLONAZEPAM) (0.5 MILLIGRAM, TABLETS) (CLONAZEPAM) [Concomitant]
  3. MIRALAX (MACROGOL) (MACROGOL) [Concomitant]
  4. SAVELLA [Suspect]
     Indication: FIBROMYALGIA
     Dosage: 100 MG (50 MG,2 IN 1 D),ORAL
     Route: 048
     Dates: start: 20090101, end: 20090101
  5. BUSPAR (BUSPIRONE HYDROCHLORIDE) (TABLETS) (BUSPIRONE HYDROCHLORIDE) [Concomitant]
  6. TRAZODONE (TRAZODONE) (50 MILLIGRAM, TABLETS) (TRAZODONE) [Concomitant]
  7. NEURONTIN (GABAPENTIN) (300 MILLIGRAM, CAPSULES) (GABAPENTIN) [Concomitant]
  8. SAVELLA [Suspect]
     Indication: FIBROMYALGIA
     Dosage: 12.5 MG (12.5 MG,1 IN 1 D),ORAL ; 25 MG (12.5 MG,2 IN 1 D),ORAL ; 50 MG (25 MG,2 IN 1 D),ORAL
     Route: 048
     Dates: start: 20090101, end: 20090101
  9. SAVELLA [Suspect]
     Indication: FIBROMYALGIA
     Dosage: 12.5 MG (12.5 MG,1 IN 1 D),ORAL ; 25 MG (12.5 MG,2 IN 1 D),ORAL ; 50 MG (25 MG,2 IN 1 D),ORAL
     Route: 048
     Dates: start: 20090101, end: 20090101
  10. SAVELLA [Suspect]
     Indication: FIBROMYALGIA
     Dosage: 12.5 MG (12.5 MG,1 IN 1 D),ORAL ; 25 MG (12.5 MG,2 IN 1 D),ORAL ; 50 MG (25 MG,2 IN 1 D),ORAL
     Route: 048
     Dates: start: 20090101, end: 20090101
  11. FENTANYL (FENTANYL) (TRANSDERMAL) (FENTANYL) [Concomitant]

REACTIONS (2)
  - INSOMNIA [None]
  - NIGHTMARE [None]
